FAERS Safety Report 20377115 (Version 1)
Quarter: 2022Q1

REPORT INFORMATION
  Report Type: Spontaneous
  Country: HU (occurrence: HU)
  Receive Date: 20220125
  Receipt Date: 20220125
  Transmission Date: 20220424
  Serious: Yes (Hospitalization, Other)
  Sender: FDA-Public Use
  Company Number: HU-BIOGEN-2022BI01087376

PATIENT
  Age: 52 Year
  Sex: Female

DRUGS (1)
  1. TECFIDERA [Suspect]
     Active Substance: DIMETHYL FUMARATE
     Indication: Relapsing-remitting multiple sclerosis
     Route: 048
     Dates: start: 20211207, end: 20211229

REACTIONS (8)
  - Asthenia [Unknown]
  - Decreased appetite [Unknown]
  - C-reactive protein increased [Unknown]
  - White blood cell count increased [Unknown]
  - Gamma-glutamyltransferase increased [Unknown]
  - Gastritis erosive [Unknown]
  - Nausea [Unknown]
  - Underdose [Unknown]

NARRATIVE: CASE EVENT DATE: 20211207
